FAERS Safety Report 7468930-4 (Version None)
Quarter: 2011Q2

REPORT INFORMATION
  Report Type: 
  Country: None (occurrence: None)
  Receive Date: 20110428
  Receipt Date: 20110411
  Transmission Date: 20111010
  Serious: No
  Sender: FDA-Public Use
  Company Number: 2011-0817

PATIENT
  Age: 56 Year
  Sex: Female
  Weight: 64 kg

DRUGS (2)
  1. SOMATULINE DEPOT [Suspect]
     Indication: CARCINOID TUMOUR
     Dosage: 90 MG (90 MG,  1 IN 28 D), SUBCUTANEOUS
     Route: 058
     Dates: start: 20100218, end: 20110218
  2. LOPERAMIDE [Concomitant]

REACTIONS (8)
  - INJECTION SITE NODULE [None]
  - HEADACHE [None]
  - FREQUENT BOWEL MOVEMENTS [None]
  - INJECTION SITE PAIN [None]
  - DIARRHOEA [None]
  - FLATULENCE [None]
  - REFUSAL OF TREATMENT BY PATIENT [None]
  - ERYTHEMA [None]
